FAERS Safety Report 10629569 (Version 1)
Quarter: 2014Q4

REPORT INFORMATION
  Report Type: Spontaneous
  Country: US (occurrence: US)
  Receive Date: 20141205
  Receipt Date: 20141205
  Transmission Date: 20150529
  Serious: Yes (Other)
  Sender: FDA-Public Use
  Company Number: US-BRISTOL-MYERS SQUIBB COMPANY-21349378

PATIENT
  Age: 3 Decade
  Sex: Male

DRUGS (2)
  1. ABILIFY [Suspect]
     Active Substance: ARIPIPRAZOLE
     Indication: SUBSTANCE ABUSE
  2. LITHIUM [Suspect]
     Active Substance: LITHIUM CARBONATE
     Indication: SUBSTANCE ABUSE

REACTIONS (2)
  - Neuroleptic malignant syndrome [Recovered/Resolved]
  - Off label use [Recovered/Resolved]
